FAERS Safety Report 16108853 (Version 22)
Quarter: 2019Q3

REPORT INFORMATION
  Report Type: Report from Study
  Country: CA (occurrence: CA)
  Receive Date: 20190323
  Receipt Date: 20190916
  Transmission Date: 20191004
  Serious: Yes (Life-Threatening, Other)
  Sender: FDA-Public Use
  Company Number: PHHY2019CA059585

PATIENT
  Age: 41 Year
  Sex: Female

DRUGS (9)
  1. COSENTYX [Suspect]
     Active Substance: SECUKINUMAB
     Indication: ANKYLOSING SPONDYLITIS
     Dosage: 150 MG, QW (PRE-FILLED SYRINGE)
     Route: 058
     Dates: start: 20190225
  2. COSENTYX [Suspect]
     Active Substance: SECUKINUMAB
     Dosage: 150 MG, QMO (PRE-FILLED SYRINGE)
     Route: 058
     Dates: start: 20190328
  3. COSENTYX [Suspect]
     Active Substance: SECUKINUMAB
     Dosage: 150 MG, QW (PRE-FILLED SYRINGE)
     Route: 058
     Dates: start: 20190307
  4. COSENTYX [Suspect]
     Active Substance: SECUKINUMAB
     Dosage: 300 MG, QMO
     Route: 058
     Dates: start: 20190710
  5. COSENTYX [Suspect]
     Active Substance: SECUKINUMAB
     Dosage: 300 MG, QMO
     Route: 058
  6. HUMIRA [Concomitant]
     Active Substance: ADALIMUMAB
     Indication: PRODUCT USED FOR UNKNOWN INDICATION
     Dosage: 1 DF, QMO
     Route: 058
  7. COSENTYX [Suspect]
     Active Substance: SECUKINUMAB
     Dosage: 300 MG, QMO
     Route: 058
     Dates: start: 20190525
  8. COSENTYX [Suspect]
     Active Substance: SECUKINUMAB
     Dosage: 300 MG, QMO
     Route: 058
     Dates: start: 2019
  9. COSENTYX [Suspect]
     Active Substance: SECUKINUMAB
     Dosage: 150 MG, QMO (PRE-FILLED SYRINGE)
     Route: 058
     Dates: start: 20190321

REACTIONS (46)
  - Suicidal ideation [Unknown]
  - Feeling of body temperature change [Unknown]
  - Hypersomnia [Unknown]
  - Head discomfort [Unknown]
  - Fatigue [Unknown]
  - Cough [Not Recovered/Not Resolved]
  - Skin discolouration [Unknown]
  - Foot fracture [Unknown]
  - Musculoskeletal chest pain [Unknown]
  - Wheezing [Unknown]
  - Aphonia [Not Recovered/Not Resolved]
  - Malaise [Unknown]
  - Mental impairment [Unknown]
  - Loss of consciousness [Unknown]
  - Burning sensation [Unknown]
  - Bronchitis [Unknown]
  - Hypersensitivity [Unknown]
  - Hyperhidrosis [Unknown]
  - Mobility decreased [Unknown]
  - Blood pressure increased [Unknown]
  - Dyspnoea [Unknown]
  - Joint noise [Unknown]
  - Disturbance in attention [Unknown]
  - Spinal pain [Unknown]
  - Gait disturbance [Unknown]
  - Pneumonia [Not Recovered/Not Resolved]
  - Fall [Unknown]
  - Head injury [Unknown]
  - Lung disorder [Unknown]
  - Dizziness [Unknown]
  - Choking [Not Recovered/Not Resolved]
  - Pyrexia [Unknown]
  - Arthralgia [Unknown]
  - Vomiting [Unknown]
  - Pain in extremity [Unknown]
  - Insomnia [Unknown]
  - Infection [Not Recovered/Not Resolved]
  - Haemorrhage [Unknown]
  - Confusional state [Unknown]
  - Discomfort [Unknown]
  - Peripheral swelling [Unknown]
  - Gastrooesophageal reflux disease [Unknown]
  - Ligament sprain [Unknown]
  - Joint injury [Unknown]
  - Emotional distress [Unknown]
  - Back pain [Unknown]

NARRATIVE: CASE EVENT DATE: 20190304
